FAERS Safety Report 24963178 (Version 2)
Quarter: 2025Q1

REPORT INFORMATION
  Report Type: Report from Study
  Country: DE (occurrence: DE)
  Receive Date: 20250213
  Receipt Date: 20250214
  Transmission Date: 20250409
  Serious: Yes (Hospitalization, Other)
  Sender: ABBVIE
  Company Number: DE-ABBVIE-6069385

PATIENT
  Age: 80 Year
  Sex: Male

DRUGS (22)
  1. CARBIDOPA\LEVODOPA [Suspect]
     Active Substance: CARBIDOPA\LEVODOPA
     Indication: Parkinson^s disease
     Route: 050
  2. CARBIDOPA\LEVODOPA [Suspect]
     Active Substance: CARBIDOPA\LEVODOPA
     Route: 050
     Dates: start: 20230906
  3. CARBIDOPA\LEVODOPA [Suspect]
     Active Substance: CARBIDOPA\LEVODOPA
     Route: 050
  4. CHOLECALCIFEROL [Concomitant]
     Active Substance: CHOLECALCIFEROL
     Indication: Product used for unknown indication
     Route: 048
     Dates: start: 20241221
  5. DEXAMETHASONE [Concomitant]
     Active Substance: DEXAMETHASONE
     Indication: Product used for unknown indication
     Route: 050
     Dates: start: 20241221
  6. IBUPROFEN [Concomitant]
     Active Substance: IBUPROFEN
     Indication: Pain
     Route: 048
     Dates: start: 20241221
  7. BENSERAZIDE HYDROCHLORIDE\LEVODOPA [Concomitant]
     Active Substance: BENSERAZIDE HYDROCHLORIDE\LEVODOPA
     Indication: Motor dysfunction
     Route: 048
     Dates: start: 20241221
  8. MOVIPREP [Concomitant]
     Active Substance: ASCORBIC ACID\POLYETHYLENE GLYCOL 3350\POTASSIUM CHLORIDE\SODIUM ASCORBATE\SODIUM CHLORIDE\SODIUM SU
     Indication: Constipation
     Route: 048
     Dates: start: 20241221
  9. OXYCODONE HYDROCHLORIDE [Concomitant]
     Active Substance: OXYCODONE HYDROCHLORIDE
     Indication: Product used for unknown indication
     Route: 048
     Dates: start: 20241221
  10. NALOXONE [Concomitant]
     Active Substance: NALOXONE
     Indication: Product used for unknown indication
     Route: 048
     Dates: start: 20241221
  11. PANTOPRAZOLE SODIUM [Concomitant]
     Active Substance: PANTOPRAZOLE SODIUM
     Indication: Hyperchlorhydria
     Route: 048
     Dates: start: 20241221
  12. ACETAMINOPHEN [Concomitant]
     Active Substance: ACETAMINOPHEN
     Indication: Product used for unknown indication
     Route: 048
     Dates: start: 20241221
  13. ACETAMINOPHEN [Concomitant]
     Active Substance: ACETAMINOPHEN
     Indication: Product used for unknown indication
     Route: 042
     Dates: start: 20250108
  14. PREGABALIN [Concomitant]
     Active Substance: PREGABALIN
     Indication: Product used for unknown indication
     Route: 048
     Dates: start: 20241221
  15. RISPERIDONE [Concomitant]
     Active Substance: RISPERIDONE
     Indication: Product used for unknown indication
     Route: 048
     Dates: start: 20241221
  16. THIAMINE [Concomitant]
     Active Substance: THIAMINE
     Indication: Product used for unknown indication
     Route: 048
  17. FOLIC ACID [Concomitant]
     Active Substance: FOLIC ACID
     Indication: Product used for unknown indication
     Route: 048
     Dates: start: 20250109
  18. POTASSIUM [Concomitant]
     Active Substance: POTASSIUM
     Indication: Product used for unknown indication
     Route: 048
  19. POLYETHYLENE GLYCOL 3350 [Concomitant]
     Active Substance: POLYETHYLENE GLYCOL 3350
     Indication: Product used for unknown indication
     Route: 048
     Dates: start: 20250109
  20. OXYCODONE [Concomitant]
     Active Substance: OXYCODONE
     Indication: Product used for unknown indication
     Route: 048
     Dates: start: 20250109
  21. PANTOPRAZOLE [Concomitant]
     Active Substance: PANTOPRAZOLE
     Indication: Product used for unknown indication
     Route: 048
  22. PYRIDOXINE HYDROCHLORIDE [Concomitant]
     Active Substance: PYRIDOXINE HYDROCHLORIDE
     Indication: Product used for unknown indication
     Route: 048
     Dates: start: 20250109

REACTIONS (54)
  - Sleep disorder [Recovering/Resolving]
  - Device issue [Unknown]
  - Hallucination [Recovering/Resolving]
  - Cognitive disorder [Not Recovered/Not Resolved]
  - Poor quality sleep [Unknown]
  - Rapid eye movement sleep behaviour disorder [Unknown]
  - On and off phenomenon [Unknown]
  - Pneumonia aspiration [Unknown]
  - Urosepsis [Unknown]
  - Hiatus hernia [Unknown]
  - Gastrooesophageal reflux disease [Unknown]
  - Vitamin B6 deficiency [Unknown]
  - Folate deficiency [Unknown]
  - Axonal and demyelinating polyneuropathy [Unknown]
  - Normochromic normocytic anaemia [Unknown]
  - Nausea [Unknown]
  - Vomiting [Unknown]
  - Weight decreased [Unknown]
  - Device dislocation [Unknown]
  - Osteochondrosis [Unknown]
  - Atrioventricular block [Unknown]
  - Hypertension [Unknown]
  - Lumbar vertebral fracture [Unknown]
  - Fall [Unknown]
  - Feeding disorder [Unknown]
  - Hypoaesthesia [Unknown]
  - General physical health deterioration [Unknown]
  - Disorientation [Unknown]
  - Aggression [Unknown]
  - Nocturia [Unknown]
  - Constipation [Unknown]
  - Depressed mood [Unknown]
  - Psychomotor skills impaired [Unknown]
  - Asthenia [Unknown]
  - Diastolic dysfunction [Unknown]
  - Gait disturbance [Unknown]
  - Mobility decreased [Unknown]
  - Thrombocytopenia [Unknown]
  - Abdominal pain [Unknown]
  - Cough [Unknown]
  - Dysphagia [Unknown]
  - Intentional medical device removal by patient [Recovered/Resolved]
  - Intentional device misuse [Recovered/Resolved]
  - Device related thrombosis [Recovered/Resolved]
  - Haematuria [Recovered/Resolved]
  - Polyneuropathy [Unknown]
  - Cardiomegaly [Unknown]
  - Psychotic symptom [Unknown]
  - Bradykinesia [Unknown]
  - Decreased appetite [Unknown]
  - Hallucination, visual [Unknown]
  - Hallucination, auditory [Unknown]
  - Paranoia [Unknown]
  - Malaise [Unknown]

NARRATIVE: CASE EVENT DATE: 20240601
